FAERS Safety Report 7414294-1 (Version None)
Quarter: 2011Q2

REPORT INFORMATION
  Report Type: 
  Country: None (occurrence: None)
  Receive Date: 20110411
  Receipt Date: 20110411
  Transmission Date: 20111010
  Serious: No
  Sender: FDA-Public Use
  Company Number: None

PATIENT
  Age: 53 Year
  Sex: Female
  Weight: 120.2032 kg

DRUGS (1)
  1. AMLODIPINE [Suspect]
     Indication: HYPERTENSION
     Dosage: 5MG ZYG 1 DAILY ORAL
     Route: 048
     Dates: start: 20110324, end: 20110330

REACTIONS (4)
  - FAECAL INCONTINENCE [None]
  - DIZZINESS [None]
  - SCREAMING [None]
  - PRODUCT SUBSTITUTION ISSUE [None]
